FAERS Safety Report 18826496 (Version 2)
Quarter: 2024Q2

REPORT INFORMATION
  Report Type: Spontaneous
  Country: DE (occurrence: DE)
  Receive Date: 20210202
  Receipt Date: 20240625
  Transmission Date: 20240716
  Serious: Yes (Life-Threatening, Disabling)
  Sender: FDA-Public Use
  Company Number: None

PATIENT
  Age: 63 Year
  Sex: Male
  Weight: 64 kg

DRUGS (2)
  1. OMEPRAZOLE [Suspect]
     Active Substance: DONEPEZIL HYDROCHLORIDE\OMEPRAZOLE\OMEPRAZOLE MAGNESIUM
     Indication: Gastritis prophylaxis
     Dosage: OMEPRAZOLE-RATIOPHARM NT 20 MG GASTRIC JUICE HARD CAPS
     Route: 065
     Dates: start: 20200706, end: 20200708
  2. ESOMEPRAZOLE [Suspect]
     Active Substance: ESOMEPRAZOLE
     Indication: Gastritis prophylaxis
     Dosage: ROA:BY PROBE?ESOMEPRAZOLE TAD 20 MG FOR HEARTBURN
     Route: 065
     Dates: start: 20200708, end: 20200916

REACTIONS (5)
  - Dermatitis allergic [Recovering/Resolving]
  - Wound [Recovering/Resolving]
  - Pain of skin [Recovering/Resolving]
  - Dermatitis [Recovering/Resolving]
  - Emotional distress [Recovered/Resolved with Sequelae]

NARRATIVE: CASE EVENT DATE: 20200706
